FAERS Safety Report 19856758 (Version 4)
Quarter: 2022Q2

REPORT INFORMATION
  Report Type: Spontaneous
  Country: US (occurrence: None)
  Receive Date: 20210920
  Receipt Date: 20220407
  Transmission Date: 20220721
  Serious: No
  Sender: FDA-Public Use
  Company Number: 2021A728808

PATIENT
  Sex: Female
  Weight: 96.2 kg

DRUGS (2)
  1. BYDUREON BCISE [Suspect]
     Active Substance: EXENATIDE
     Indication: Diabetes mellitus
     Route: 058
  2. BYDUREON [Concomitant]
     Active Substance: EXENATIDE
     Indication: Diabetes mellitus
     Route: 058

REACTIONS (3)
  - Confusional state [Unknown]
  - Incorrect dose administered by device [Unknown]
  - Device leakage [Unknown]
